FAERS Safety Report 25583131 (Version 1)
Quarter: 2025Q3

REPORT INFORMATION
  Report Type: Report from Study
  Country: GB (occurrence: GB)
  Receive Date: 20250721
  Receipt Date: 20250721
  Transmission Date: 20251021
  Serious: Yes (Other)
  Sender: UCB
  Company Number: GB-UCBSA-2025043944

PATIENT

DRUGS (1)
  1. BIMEKIZUMAB [Suspect]
     Active Substance: BIMEKIZUMAB
     Indication: Product used for unknown indication
     Dates: start: 20240715, end: 20240724

REACTIONS (1)
  - Vulval abscess [Unknown]

NARRATIVE: CASE EVENT DATE: 20240101
